FAERS Safety Report 10177653 (Version 2)
Quarter: 2014Q2

REPORT INFORMATION
  Report Type: Spontaneous
  Country: FR (occurrence: FR)
  Receive Date: 20140516
  Receipt Date: 20140522
  Transmission Date: 20141212
  Serious: Yes (Death, Hospitalization)
  Sender: FDA-Public Use
  Company Number: FR-ASTRAZENECA-2014SE33425

PATIENT
  Age: 21041 Day
  Sex: Female

DRUGS (13)
  1. INEXIUM [Suspect]
     Route: 048
     Dates: start: 20140414
  2. METHOTREXATE TEVA [Suspect]
     Route: 042
     Dates: start: 20140323, end: 20140410
  3. METHOTREXATE TEVA [Suspect]
     Route: 042
     Dates: start: 20140425
  4. ROVALCYTE [Interacting]
     Route: 048
     Dates: start: 20140414, end: 20140427
  5. VINCRISTINE TEVA [Interacting]
     Route: 042
     Dates: start: 20140425, end: 20140425
  6. NATULAN [Interacting]
     Route: 048
     Dates: start: 20140426, end: 20140427
  7. BACTRIM [Interacting]
     Route: 048
     Dates: start: 20140327, end: 20140331
  8. BACTRIM [Interacting]
     Route: 048
     Dates: start: 20140404, end: 20140425
  9. LOVENOX [Concomitant]
  10. ARANESP [Concomitant]
     Dates: start: 20140425
  11. KEPPRA [Concomitant]
     Dates: start: 20140425
  12. FLUCONAZOLE [Concomitant]
  13. LASILIX [Concomitant]

REACTIONS (8)
  - Drug interaction [Fatal]
  - Chemotherapeutic drug level increased [Fatal]
  - Septic shock [Fatal]
  - Multi-organ failure [Fatal]
  - Cardio-respiratory arrest [Fatal]
  - Thrombosis [Unknown]
  - Hepatitis toxic [Recovered/Resolved]
  - Pancytopenia [Unknown]
